FAERS Safety Report 6919047-6 (Version None)
Quarter: 2010Q3

REPORT INFORMATION
  Report Type: 
  Country: None (occurrence: None)
  Receive Date: 20100811
  Receipt Date: 20100728
  Transmission Date: 20110219
  Serious: Yes (Hospitalization, Other)
  Sender: FDA-Public Use
  Company Number: PHHY2009BR26331

PATIENT
  Sex: Female

DRUGS (5)
  1. VOLTAREN [Suspect]
     Indication: PROCEDURAL PAIN
     Dosage: 75 MG, Q8H
     Route: 030
  2. VOLTAREN [Suspect]
     Dosage: 75 MG, Q12H
     Route: 030
  3. VOLTAREN [Suspect]
     Dosage: 75 MG, TID
     Route: 030
     Dates: start: 20100525
  4. CEFUROXIME AXETIL [Suspect]
     Dosage: 1 DF, BID
     Route: 048
     Dates: start: 20100525
  5. FRISIUM [Suspect]
     Dosage: 1 DF, QD
     Route: 048
     Dates: start: 20100525

REACTIONS (14)
  - ABSCESS [None]
  - ACTIVITIES OF DAILY LIVING IMPAIRED [None]
  - ANXIETY [None]
  - DEBRIDEMENT [None]
  - DEPRESSION [None]
  - DRAIN REMOVAL [None]
  - DRUG INEFFECTIVE [None]
  - INJECTION SITE INDURATION [None]
  - INJECTION SITE INFECTION [None]
  - INJECTION SITE NECROSIS [None]
  - PAIN [None]
  - PROCEDURAL PAIN [None]
  - RESTLESSNESS [None]
  - SURGERY [None]
